FAERS Safety Report 7329342-7 (Version None)
Quarter: 2011Q1

REPORT INFORMATION
  Report Type: 
  Country: None (occurrence: None)
  Receive Date: 20110303
  Receipt Date: 20110228
  Transmission Date: 20110831
  Serious: Yes (Other)
  Sender: FDA-Public Use
  Company Number: JP-MERCK-1102USA03589

PATIENT
  Age: 64 Year
  Sex: Female

DRUGS (13)
  1. LEVOLEUCOVORIN CALCIUM [Concomitant]
     Route: 041
     Dates: start: 20081101, end: 20091001
  2. FLUOROURACIL [Concomitant]
     Route: 042
     Dates: start: 20081101
  3. SENNOSIDES [Concomitant]
     Route: 048
  4. AVASTIN [Suspect]
     Route: 041
     Dates: start: 20090201, end: 20091001
  5. DICLOFENAC SODIUM [Concomitant]
     Route: 048
  6. FAMOTIDINE [Concomitant]
     Route: 048
  7. OXALIPLATIN [Concomitant]
     Indication: CHEMOTHERAPY
     Route: 041
     Dates: start: 20081101
  8. FLUOROURACIL [Concomitant]
     Route: 042
     Dates: start: 20081101
  9. ALPRAZOLAM [Concomitant]
     Route: 048
  10. DECADRON [Suspect]
     Indication: PROPHYLAXIS OF NAUSEA AND VOMITING
     Route: 048
     Dates: start: 20081101, end: 20091001
  11. DECADRON [Suspect]
     Route: 048
     Dates: start: 20081101, end: 20091001
  12. AVASTIN [Suspect]
     Indication: RECTOSIGMOID CANCER
     Route: 041
     Dates: start: 20081101, end: 20081201
  13. OXYCONTIN [Concomitant]
     Route: 048

REACTIONS (1)
  - OSTEONECROSIS OF JAW [None]
